FAERS Safety Report 24928886 (Version 1)
Quarter: 2025Q1

REPORT INFORMATION
  Report Type: Spontaneous
  Country: US (occurrence: US)
  Receive Date: 20250205
  Receipt Date: 20250205
  Transmission Date: 20250409
  Serious: No
  Sender: pharmaAND
  Company Number: US-Pharmaand-2024000074

PATIENT
  Sex: Female

DRUGS (2)
  1. RUBRACA [Suspect]
     Active Substance: RUCAPARIB CAMSYLATE
     Indication: Product used for unknown indication
  2. RUBRACA [Suspect]
     Active Substance: RUCAPARIB CAMSYLATE
     Dosage: ONE TABLET BY MOUTH DAILY
     Route: 048

REACTIONS (1)
  - Fatigue [Unknown]
